FAERS Safety Report 7403493-0 (Version None)
Quarter: 2011Q2

REPORT INFORMATION
  Report Type: 
  Country: None (occurrence: None)
  Receive Date: 20110408
  Receipt Date: 20110330
  Transmission Date: 20111010
  Serious: Yes (Other)
  Sender: FDA-Public Use
  Company Number: US-ASTRAZENECA-2011SE18262

PATIENT
  Age: 64 Year
  Sex: Female

DRUGS (1)
  1. PRILOSEC [Suspect]
     Route: 048

REACTIONS (5)
  - MALAISE [None]
  - RENAL FAILURE [None]
  - DRUG EFFECT DECREASED [None]
  - VOMITING [None]
  - DIALYSIS [None]
